FAERS Safety Report 5338078-3 (Version None)
Quarter: 2007Q2

REPORT INFORMATION
  Report Type: 
  Country: None (occurrence: None)
  Receive Date: 20070530
  Receipt Date: 20070521
  Transmission Date: 20071010
  Serious: Yes (Other)
  Sender: FDA-Public Use
  Company Number: PHBS2006BR16046

PATIENT
  Age: 77 Year
  Sex: Male
  Weight: 63 kg

DRUGS (4)
  1. AMINOFILINA [Suspect]
     Indication: ASTHMA
     Dosage: UNK, BID
     Route: 048
  2. FORASEQ [Suspect]
     Indication: EMPHYSEMA
     Dosage: UNK, BID
  3. OMEPRAZOLE [Concomitant]
     Indication: GASTROINTESTINAL DISORDER
     Route: 048
  4. SIMETHICONE [Concomitant]
     Route: 048

REACTIONS (7)
  - DIVERTICULITIS [None]
  - DYSPNOEA [None]
  - DYSURIA [None]
  - GASTROINTESTINAL DISORDER [None]
  - LUNG NEOPLASM [None]
  - PROSTATIC DISORDER [None]
  - TREMOR [None]
